APPROVED DRUG PRODUCT: CALCIUM ACETATE
Active Ingredient: CALCIUM ACETATE
Strength: 667MG
Dosage Form/Route: TABLET;ORAL
Application: A091561 | Product #001 | TE Code: AB
Applicant: PADAGIS US LLC
Approved: Apr 13, 2011 | RLD: No | RS: No | Type: RX